FAERS Safety Report 7947961-1 (Version None)
Quarter: 2011Q4

REPORT INFORMATION
  Report Type: 
  Country: None (occurrence: None)
  Receive Date: 20111125
  Receipt Date: 20111111
  Transmission Date: 20120403
  Serious: Yes (Other)
  Sender: FDA-Public Use
  Company Number: JP-ACCORD-011121

PATIENT
  Age: 7 Year
  Sex: Male

DRUGS (2)
  1. METHOTREXATE [Concomitant]
  2. TACROLIMUS [Suspect]
     Indication: GRAFT VERSUS HOST DISEASE
     Dosage: ORAL
     Route: 048

REACTIONS (8)
  - NEPHROTIC SYNDROME [None]
  - HYPOTENSION [None]
  - DIARRHOEA [None]
  - PLEURAL EFFUSION [None]
  - OBLITERATIVE BRONCHIOLITIS [None]
  - ACUTE GRAFT VERSUS HOST DISEASE IN INTESTINE [None]
  - LUNG DISORDER [None]
  - ACUTE GRAFT VERSUS HOST DISEASE IN SKIN [None]
